FAERS Safety Report 18564519 (Version 1)
Quarter: 2020Q4

REPORT INFORMATION
  Report Type: Spontaneous
  Country: FR (occurrence: FR)
  Receive Date: 20201201
  Receipt Date: 20201201
  Transmission Date: 20210114
  Serious: Yes (Other)
  Sender: FDA-Public Use
  Company Number: FR-SA-2020SA343931

PATIENT

DRUGS (1)
  1. AUBAGIO [Suspect]
     Active Substance: TERIFLUNOMIDE
     Indication: MULTIPLE SCLEROSIS
     Dosage: 14 MG, QD
     Route: 048
     Dates: start: 20190801, end: 20200917

REACTIONS (2)
  - Condition aggravated [Recovering/Resolving]
  - Hidradenitis [Recovering/Resolving]

NARRATIVE: CASE EVENT DATE: 201908
